FAERS Safety Report 21170918 (Version 1)
Quarter: 2022Q3

REPORT INFORMATION
  Report Type: Spontaneous
  Country: US (occurrence: None)
  Receive Date: 20220803
  Receipt Date: 20220803
  Transmission Date: 20221026
  Serious: No
  Sender: FDA-Public Use
  Company Number: None

PATIENT
  Age: 4 Year
  Sex: Female

DRUGS (1)
  1. SILDENAFIL CITRATE [Suspect]
     Active Substance: SILDENAFIL CITRATE
     Indication: Pulmonary arterial hypertension
     Dosage: 10 MG 3 TIMES DAILY ORALLY?
     Route: 048
     Dates: start: 202111

REACTIONS (1)
  - Rhinovirus infection [None]

NARRATIVE: CASE EVENT DATE: 20220615
